FAERS Safety Report 10033651 (Version 1)
Quarter: 2014Q1

REPORT INFORMATION
  Report Type: Spontaneous
  Country: US (occurrence: US)
  Receive Date: 20140325
  Receipt Date: 20140325
  Transmission Date: 20141002
  Serious: No
  Sender: FDA-Public Use
  Company Number: US-BIOGENIDEC-2014BI023576

PATIENT
  Age: 45 Year
  Sex: Female

DRUGS (5)
  1. TECFIDERA [Suspect]
     Indication: MULTIPLE SCLEROSIS
     Route: 048
     Dates: start: 20131022
  2. ROPINIROLE [Concomitant]
  3. REQUIP [Concomitant]
  4. MAXALT [Concomitant]
  5. AVONEX [Concomitant]

REACTIONS (1)
  - Fall [Recovered/Resolved]
